FAERS Safety Report 17336250 (Version 1)
Quarter: 2020Q1

REPORT INFORMATION
  Report Type: Spontaneous
  Country: US (occurrence: US)
  Receive Date: 20200129
  Receipt Date: 20200129
  Transmission Date: 20200409
  Serious: No
  Sender: FDA-Public Use
  Company Number: US-CELGENEUS-USA-20200108910

PATIENT
  Sex: Female

DRUGS (2)
  1. OTEZLA [Suspect]
     Active Substance: APREMILAST
     Indication: SPONDYLOARTHROPATHY
     Dosage: 60 MILLIGRAM
     Route: 048
     Dates: start: 20191216
  2. OTEZLA [Suspect]
     Active Substance: APREMILAST
     Indication: OFF LABEL USE

REACTIONS (3)
  - Product dose omission [Unknown]
  - Unevaluable event [Not Recovered/Not Resolved]
  - Diarrhoea [Recovering/Resolving]
